FAERS Safety Report 4388974-9 (Version None)
Quarter: 2004Q3

REPORT INFORMATION
  Report Type: 
  Country: None (occurrence: None)
  Receive Date: 20040702
  Receipt Date: 20040503
  Transmission Date: 20050211
  Serious: No
  Sender: FDA-Public Use
  Company Number: PHEH2004US04945

PATIENT
  Sex: Female

DRUGS (5)
  1. DIOVAN [Suspect]
     Indication: HYPERTENSION
     Dosage: 80 MG, QD
     Route: 048
     Dates: start: 20030101, end: 20030901
  2. DIOVAN [Suspect]
     Dosage: 80 MG, QD
     Dates: start: 20031101, end: 20040501
  3. SYNTHROID [Concomitant]
  4. EVISTA [Concomitant]
  5. DIOVAN [Suspect]
     Dosage: 80 MG, QD
     Dates: start: 20031001, end: 20031101

REACTIONS (1)
  - BLOOD PRESSURE DECREASED [None]
